FAERS Safety Report 5871245-9 (Version None)
Quarter: 2008Q3

REPORT INFORMATION
  Report Type: 
  Country: None (occurrence: None)
  Receive Date: 20080903
  Receipt Date: 20080903
  Transmission Date: 20090109
  Serious: Yes (Death)
  Sender: FDA-Public Use
  Company Number: None

PATIENT
  Sex: Male
  Weight: 16 kg

DRUGS (2)
  1. FEIBA [Suspect]
     Indication: HAEMOPHILIA
     Dates: start: 20070409, end: 20080811
  2. FEIBA [Suspect]
     Indication: PROPHYLAXIS
     Dates: start: 20070409, end: 20080811

REACTIONS (31)
  - AGITATION [None]
  - ATELECTASIS [None]
  - ATRIAL THROMBOSIS [None]
  - BREATH SOUNDS ABNORMAL [None]
  - CENTRAL LINE INFECTION [None]
  - CONTUSION [None]
  - COUGH [None]
  - DECREASED ACTIVITY [None]
  - ECHOCARDIOGRAM ABNORMAL [None]
  - ELECTROCARDIOGRAM ABNORMAL [None]
  - EMBOLISM [None]
  - EPISTAXIS [None]
  - HAEMARTHROSIS [None]
  - HEPATOSPLENOMEGALY [None]
  - HYPOPHAGIA [None]
  - HYPOTENSION [None]
  - INFUSION SITE EXTRAVASATION [None]
  - LETHARGY [None]
  - LYMPHADENOPATHY [None]
  - OCCULT BLOOD [None]
  - OEDEMA PERIPHERAL [None]
  - OXYGEN SATURATION DECREASED [None]
  - PALLOR [None]
  - PELVIC FLUID COLLECTION [None]
  - PNEUMONIA [None]
  - PNEUMONITIS [None]
  - PULMONARY HAEMORRHAGE [None]
  - PYREXIA [None]
  - RESPIRATORY DISTRESS [None]
  - STAPHYLOCOCCAL SEPSIS [None]
  - TACHYPNOEA [None]
